FAERS Safety Report 18031710 (Version 1)
Quarter: 2020Q3

REPORT INFORMATION
  Report Type: Spontaneous
  Country: US (occurrence: US)
  Receive Date: 20200716
  Receipt Date: 20200716
  Transmission Date: 20201103
  Serious: No
  Sender: FDA-Public Use
  Company Number: None

PATIENT
  Age: 63 Year
  Sex: Female
  Weight: 56.25 kg

DRUGS (1)
  1. BAHAMA BO S OCEAN FRESH HAND SANITIZER [Suspect]
     Active Substance: ALCOHOL
     Indication: INFECTION PROPHYLAXIS
     Dates: start: 20200602, end: 20200605

REACTIONS (1)
  - Product odour abnormal [None]

NARRATIVE: CASE EVENT DATE: 20200601
